FAERS Safety Report 9445995 (Version 5)
Quarter: 2015Q2

REPORT INFORMATION
  Report Type: Spontaneous
  Country: US (occurrence: US)
  Receive Date: 20130807
  Receipt Date: 20150512
  Transmission Date: 20150821
  Serious: Yes (Hospitalization, Other)
  Sender: FDA-Public Use
  Company Number: US-CELGENEUS-163-POMAL-13073914

PATIENT
  Age: 90 Year
  Sex: Male
  Weight: 95.79 kg

DRUGS (23)
  1. POMALYST [Suspect]
     Active Substance: POMALIDOMIDE
     Indication: PLASMA CELL MYELOMA
     Route: 048
     Dates: start: 20130630, end: 20130719
  2. VELCADE [Concomitant]
     Active Substance: BORTEZOMIB
     Indication: PLASMA CELL MYELOMA
     Route: 058
     Dates: start: 20130221, end: 20130613
  3. LUPRON DEPOT [Concomitant]
     Active Substance: LEUPROLIDE ACETATE
     Indication: PROSTATE CANCER
     Route: 065
     Dates: start: 20130228
  4. CASODEX [Concomitant]
     Active Substance: BICALUTAMIDE
     Indication: PRODUCT USED FOR UNKNOWN INDICATION
     Dosage: 50 MILLIGRAM
     Route: 048
     Dates: start: 20130430
  5. FLOMAX [Concomitant]
     Active Substance: TAMSULOSIN HYDROCHLORIDE
     Indication: PRODUCT USED FOR UNKNOWN INDICATION
     Dosage: .8 MILLIGRAM
     Route: 048
     Dates: start: 20121101
  6. PROCRIT [Concomitant]
     Active Substance: ERYTHROPOIETIN
     Route: 058
     Dates: start: 20130808
  7. DECADRON [Concomitant]
     Active Substance: DEXAMETHASONE
     Route: 048
     Dates: start: 20130613
  8. LIDOCAINE VISCOUS [Concomitant]
     Active Substance: LIDOCAINE HYDROCHLORIDE
     Indication: PRODUCT USED FOR UNKNOWN INDICATION
     Route: 048
     Dates: start: 20130718
  9. DECADRON [Concomitant]
     Active Substance: DEXAMETHASONE
     Indication: PLASMA CELL MYELOMA
     Route: 048
     Dates: start: 20121101, end: 20130730
  10. PROCRIT [Concomitant]
     Active Substance: ERYTHROPOIETIN
     Indication: NEPHROGENIC ANAEMIA
     Route: 058
     Dates: start: 20121101, end: 20130108
  11. METOPROLOL SUCCINATE. [Concomitant]
     Active Substance: METOPROLOL SUCCINATE
     Indication: PRODUCT USED FOR UNKNOWN INDICATION
     Route: 048
     Dates: start: 20130221
  12. PROBIOTIC [Concomitant]
     Active Substance: PROBIOTICS NOS
     Indication: PRODUCT USED FOR UNKNOWN INDICATION
     Route: 048
  13. COLCHICINE. [Concomitant]
     Active Substance: COLCHICINE
     Indication: PRODUCT USED FOR UNKNOWN INDICATION
     Route: 065
  14. POMALYST [Suspect]
     Active Substance: POMALIDOMIDE
     Route: 048
     Dates: start: 201309, end: 2013
  15. PROCRIT [Concomitant]
     Active Substance: ERYTHROPOIETIN
     Indication: PROSTATE CANCER
     Route: 058
     Dates: start: 20121018, end: 20121025
  16. PROCRIT [Concomitant]
     Active Substance: ERYTHROPOIETIN
     Route: 058
     Dates: start: 20130221, end: 20130805
  17. ASPIRINE [Concomitant]
     Active Substance: ASPIRIN
     Indication: PRODUCT USED FOR UNKNOWN INDICATION
     Dosage: 81 MILLIGRAM
     Route: 048
     Dates: start: 20121101
  18. DECADRON [Concomitant]
     Active Substance: DEXAMETHASONE
     Route: 048
     Dates: start: 20130627, end: 20130730
  19. AMBIEN [Concomitant]
     Active Substance: ZOLPIDEM TARTRATE
     Indication: PRODUCT USED FOR UNKNOWN INDICATION
     Dosage: 1/2 - 1
     Route: 048
     Dates: start: 20121210
  20. ZOMETA [Concomitant]
     Active Substance: ZOLEDRONIC ACID
     Indication: PLASMA CELL MYELOMA
     Route: 065
  21. POMALYST [Suspect]
     Active Substance: POMALIDOMIDE
     Route: 048
     Dates: start: 201311, end: 2013
  22. PROCRIT [Concomitant]
     Active Substance: ERYTHROPOIETIN
     Indication: CHRONIC KIDNEY DISEASE
     Route: 058
     Dates: start: 20130121, end: 20130221
  23. DECADRON [Concomitant]
     Active Substance: DEXAMETHASONE
     Dosage: 25 MILLIGRAM
     Route: 048
     Dates: start: 20130221, end: 20130613

REACTIONS (7)
  - Malaise [Not Recovered/Not Resolved]
  - Febrile neutropenia [Not Recovered/Not Resolved]
  - Bacterial sepsis [Recovered/Resolved]
  - Pancytopenia [Not Recovered/Not Resolved]
  - Decreased appetite [Not Recovered/Not Resolved]
  - Diarrhoea [Not Recovered/Not Resolved]
  - Dehydration [Not Recovered/Not Resolved]

NARRATIVE: CASE EVENT DATE: 2013
